FAERS Safety Report 9157578 (Version 1)
Quarter: 2013Q1

REPORT INFORMATION
  Report Type: Spontaneous
  Country: CA (occurrence: None)
  Receive Date: 20130219
  Receipt Date: 20130219
  Transmission Date: 20140127
  Serious: Yes (Other)
  Sender: FDA-Public Use
  Company Number: 2013AP002604

PATIENT
  Age: 91 Year
  Sex: Female

DRUGS (11)
  1. APO-CALCITONIN [Suspect]
     Route: 045
  2. ACETYLSALICYLIC ACID (ACETYLSALICYLIC ACID) [Concomitant]
  3. ALENDRONATE (ALENDRONATE SODIUM) [Concomitant]
  4. FLUCONAZOLE (FLUCONAZOLE) [Concomitant]
  5. METOPROLOL (METOPROLOL) [Concomitant]
  6. NEXIUM/01479302/(ESOMEPRAZOLE MAGNESIUM) [Concomitant]
  7. SYNTHROID (LEVOTHYROXINE SODIUM) [Concomitant]
  8. TRAMACET (ULTRACET) [Concomitant]
  9. TRIAMTERENE + HYDROCHLOROTHIAZIDE TABLETS (HYDROCHLOROTHIAZIDE/TRIAMTERENE) [Concomitant]
  10. TYLENOL/00020001/(PARACETAMOL) [Concomitant]
  11. VITAMIN B12/00056201/(CYANOCOBALAMIN) [Concomitant]

REACTIONS (2)
  - Joint swelling [None]
  - Myalgia [None]
